FAERS Safety Report 13040476 (Version 1)
Quarter: 2016Q4

REPORT INFORMATION
  Report Type: Spontaneous
  Country: US (occurrence: US)
  Receive Date: 20161219
  Receipt Date: 20161219
  Transmission Date: 20170207
  Serious: Yes (Hospitalization)
  Sender: FDA-Public Use
  Company Number: US-SA-2016SA195428

PATIENT
  Age: 66 Year
  Sex: Female

DRUGS (6)
  1. REMODULIN [Concomitant]
     Active Substance: TREPROSTINIL
  2. PLAVIX [Suspect]
     Active Substance: CLOPIDOGREL BISULFATE
     Route: 065
  3. AMBRISENTAN [Suspect]
     Active Substance: AMBRISENTAN
     Indication: CORONARY ARTERY DISEASE
     Route: 048
     Dates: start: 20160715
  4. ADCIRCA [Concomitant]
     Active Substance: TADALAFIL
  5. AMBRISENTAN [Suspect]
     Active Substance: AMBRISENTAN
     Indication: PULMONARY HYPERTENSION
     Route: 048
     Dates: start: 20160715
  6. COUMADIN [Suspect]
     Active Substance: WARFARIN SODIUM
     Route: 065

REACTIONS (2)
  - Epistaxis [Recovered/Resolved]
  - Haemorrhage [Recovered/Resolved]

NARRATIVE: CASE EVENT DATE: 20161005
